FAERS Safety Report 9537882 (Version 1)
Quarter: 2013Q3

REPORT INFORMATION
  Report Type: Report from Study
  Country: US (occurrence: US)
  Receive Date: 20130919
  Receipt Date: 20130919
  Transmission Date: 20140515
  Serious: Yes (Other)
  Sender: FDA-Public Use
  Company Number: US-ABBVIE-13P-163-1145518-00

PATIENT
  Sex: Female
  Weight: 106.24 kg

DRUGS (10)
  1. HUMIRA [Suspect]
     Indication: RHEUMATOID ARTHRITIS
     Route: 058
     Dates: start: 20091223, end: 20130910
  2. HUMALOG [Concomitant]
     Indication: PRODUCT USED FOR UNKNOWN INDICATION
  3. LANTUS [Concomitant]
     Indication: PRODUCT USED FOR UNKNOWN INDICATION
  4. JANUMET [Concomitant]
     Indication: PRODUCT USED FOR UNKNOWN INDICATION
  5. BENICAR [Concomitant]
     Indication: PRODUCT USED FOR UNKNOWN INDICATION
  6. MVI [Concomitant]
     Indication: PRODUCT USED FOR UNKNOWN INDICATION
  7. CRESTOR [Concomitant]
     Indication: PRODUCT USED FOR UNKNOWN INDICATION
  8. LASIX [Concomitant]
     Indication: PRODUCT USED FOR UNKNOWN INDICATION
  9. SPIROALDACTONE [Concomitant]
     Indication: PRODUCT USED FOR UNKNOWN INDICATION
  10. GLIPIZIDE [Concomitant]

REACTIONS (4)
  - Ovarian cyst [Not Recovered/Not Resolved]
  - Menorrhagia [Recovered/Resolved]
  - Hepatic cirrhosis [Not Recovered/Not Resolved]
  - Ovarian cancer [Not Recovered/Not Resolved]
